FAERS Safety Report 5892971-1 (Version None)
Quarter: 2008Q3

REPORT INFORMATION
  Report Type: 
  Country: None (occurrence: None)
  Receive Date: 20080919
  Receipt Date: 20080911
  Transmission Date: 20090109
  Serious: Yes (Hospitalization, Other)
  Sender: FDA-Public Use
  Company Number: MSTR-NO-0809S-0066

PATIENT
  Age: 60 Year
  Sex: Female
  Weight: 57.5 kg

DRUGS (4)
  1. METASTRON [Suspect]
     Indication: METASTATIC PAIN
     Dosage: NR, IV
     Route: 042
     Dates: start: 20080131, end: 20080131
  2. ZOLEDRONIC ACID [Concomitant]
  3. DOCETAXEL [Concomitant]
  4. TRASTUZUMAB [Concomitant]

REACTIONS (2)
  - BONE PAIN [None]
  - GENERAL PHYSICAL HEALTH DETERIORATION [None]
